FAERS Safety Report 16138844 (Version 1)
Quarter: 2019Q2

REPORT INFORMATION
  Report Type: Other
  Country: GB (occurrence: GB)
  Receive Date: 20190401
  Receipt Date: 20190401
  Transmission Date: 20190711
  Serious: No
  Sender: FDA-Public Use
  Company Number: GB-LUPIN PHARMACEUTICALS INC.-2018-03598

PATIENT
  Age: 22 Year
  Sex: Female

DRUGS (1)
  1. SERTRALINE [Suspect]
     Active Substance: SERTRALINE HYDROCHLORIDE
     Indication: ANXIETY
     Dosage: 15-45MG
     Route: 048
     Dates: start: 20171010, end: 20180202

REACTIONS (5)
  - Disturbance in attention [Recovered/Resolved]
  - Fatigue [Recovering/Resolving]
  - Psychomotor hyperactivity [Recovered/Resolved]
  - Nightmare [Recovered/Resolved]
  - Bruxism [Recovered/Resolved]

NARRATIVE: CASE EVENT DATE: 20171010
